FAERS Safety Report 10072597 (Version 4)
Quarter: 2014Q2

REPORT INFORMATION
  Report Type: Report from Study
  Country: US (occurrence: US)
  Receive Date: 20140411
  Receipt Date: 20140513
  Transmission Date: 20141212
  Serious: Yes (Hospitalization, Other)
  Sender: FDA-Public Use
  Company Number: US-PFIZER INC-2014087421

PATIENT
  Age: 43 Year
  Sex: Female
  Weight: 72.1 kg

DRUGS (13)
  1. TOFACITINIB CITRATE [Suspect]
     Indication: CROHN^S DISEASE
     Dosage: 5 MG, 2X/DAY
     Route: 048
     Dates: start: 20131111, end: 20140311
  2. MIRENA [Concomitant]
     Indication: CONTRACEPTION
     Dosage: UNK,  SINGLE
     Dates: start: 20070504
  3. VITAMIN D [Concomitant]
     Indication: VITAMIN SUPPLEMENTATION
     Dosage: AS NEEDED
     Route: 048
     Dates: start: 20130102
  4. VITAMIN B12 [Concomitant]
     Indication: VITAMIN B12 DEFICIENCY
     Dosage: AS NEEDED
     Dates: start: 1999
  5. VICODIN [Concomitant]
     Indication: CROHN^S DISEASE
     Dosage: AS NEEDED
     Dates: start: 20131111
  6. VICODIN [Concomitant]
     Indication: ABDOMINAL PAIN
  7. SIMETHICONE [Concomitant]
     Indication: FLATULENCE
     Dosage: UNK, AS NEEDED
     Dates: start: 201312
  8. SIMETHICONE [Concomitant]
     Indication: ABDOMINAL DISTENSION
  9. CALCIUM CARBONATE [Concomitant]
     Indication: FLATULENCE
     Dosage: UNK, AS NEEDED
     Dates: start: 201312
  10. CALCIUM CARBONATE [Concomitant]
     Indication: ABDOMINAL DISTENSION
  11. DICYCLOMINE [Concomitant]
     Indication: FLATULENCE
     Dosage: UNK, DAILY
     Dates: start: 20140120
  12. DICYCLOMINE [Concomitant]
     Indication: ABDOMINAL DISTENSION
  13. DICYCLOMINE [Concomitant]
     Indication: ABDOMINAL TENDERNESS

REACTIONS (1)
  - Intestinal anastomosis complication [Recovering/Resolving]
